FAERS Safety Report 6764424-X (Version None)
Quarter: 2010Q2

REPORT INFORMATION
  Report Type: 
  Country: None (occurrence: None)
  Receive Date: 20100609
  Receipt Date: 20100511
  Transmission Date: 20101027
  Serious: No
  Sender: FDA-Public Use
  Company Number: 2010011855

PATIENT
  Age: 8 Year
  Sex: Female
  Weight: 34.4734 kg

DRUGS (2)
  1. CHILDREN'S ZYRTEC ALLERGY [Suspect]
     Indication: NASAL CONGESTION
     Dosage: 1 TSP AS NEEDED ONLY, ORAL
     Route: 048
  2. IBUPROFEN [Concomitant]

REACTIONS (2)
  - ABDOMINAL PAIN UPPER [None]
  - PRODUCT QUALITY ISSUE [None]
